FAERS Safety Report 8610273-7 (Version None)
Quarter: 2012Q3

REPORT INFORMATION
  Report Type: 
  Country: None (occurrence: None)
  Receive Date: 20120822
  Receipt Date: 20120612
  Transmission Date: 20120928
  Serious: Yes (Other)
  Sender: FDA-Public Use
  Company Number: JP-SP-2012-05622

PATIENT
  Age: 61 Year
  Sex: Male

DRUGS (1)
  1. TICE BCG [Suspect]
     Indication: BLADDER CANCER
     Route: 043

REACTIONS (8)
  - EYE MOVEMENT DISORDER [None]
  - ARTHRALGIA [None]
  - CONJUNCTIVAL OEDEMA [None]
  - EYELID OEDEMA [None]
  - PAROPHTHALMIA [None]
  - EXOPHTHALMOS [None]
  - EXTRAOCULAR MUSCLE DISORDER [None]
  - PAPILLOEDEMA [None]
